FAERS Safety Report 5423484-9 (Version None)
Quarter: 2007Q3

REPORT INFORMATION
  Report Type: 
  Country: None (occurrence: None)
  Receive Date: 20070823
  Receipt Date: 20070820
  Transmission Date: 20080115
  Serious: Yes (Death, Other)
  Sender: FDA-Public Use
  Company Number: HQWYE701020AUG07

PATIENT
  Age: 67 Year
  Sex: Male

DRUGS (1)
  1. AMIODARONE HCL [Suspect]
     Indication: NON-OBSTRUCTIVE CARDIOMYOPATHY
     Dosage: 100 MG (FREQUENCY AND DOSE NOT PROVIDED)

REACTIONS (4)
  - BLOOD PRESSURE DECREASED [None]
  - HEPATIC CIRRHOSIS [None]
  - HEPATIC ENCEPHALOPATHY [None]
  - PARKINSONISM [None]
